FAERS Safety Report 5875458-1 (Version None)
Quarter: 2008Q3

REPORT INFORMATION
  Report Type: 
  Country: None (occurrence: None)
  Receive Date: 20080904
  Receipt Date: 20080819
  Transmission Date: 20090109
  Serious: Yes (Other)
  Sender: FDA-Public Use
  Company Number: 8036575

PATIENT
  Sex: Male
  Weight: 0.289 kg

DRUGS (4)
  1. KEPPRA [Suspect]
     Indication: EPILEPSY
     Dosage: 750 MG /D TRP
     Route: 064
     Dates: end: 20080616
  2. VALPROATE SODIUM [Suspect]
     Indication: EPILEPSY
     Dosage: 1750 MG /D TRP
     Route: 064
     Dates: end: 20080616
  3. LAMOTRIGINE [Suspect]
     Indication: EPILEPSY
     Dosage: 225 MG /D TRP
  4. LAMOTRIGINE [Suspect]
     Indication: EPILEPSY
     Dosage: 375 MG /D
     Dates: end: 20080616

REACTIONS (4)
  - BODY DYSMORPHIC DISORDER [None]
  - CAESAREAN SECTION [None]
  - CARDIOPULMONARY FAILURE [None]
  - MATERNAL DRUGS AFFECTING FOETUS [None]
